FAERS Safety Report 13923832 (Version 1)
Quarter: 2017Q3

REPORT INFORMATION
  Report Type: Spontaneous
  Country: US (occurrence: None)
  Receive Date: 20170830
  Receipt Date: 20170830
  Transmission Date: 20171127
  Serious: Yes (Other)
  Sender: FDA-Public Use
  Company Number: None

PATIENT
  Age: 57 Year
  Sex: Male
  Weight: 76.29 kg

DRUGS (1)
  1. SOFOSBUVIR/VELPATASVIR [Suspect]
     Active Substance: SOFOSBUVIR\VELPATASVIR
     Indication: HEPATITIS C
     Dosage: MG EVERY DAY PO
     Route: 048
     Dates: start: 20170707

REACTIONS (1)
  - Alopecia [None]

NARRATIVE: CASE EVENT DATE: 20170828
